FAERS Safety Report 25132687 (Version 1)
Quarter: 2025Q1

REPORT INFORMATION
  Report Type: Spontaneous
  Country: US (occurrence: US)
  Receive Date: 20250328
  Receipt Date: 20250328
  Transmission Date: 20250408
  Serious: No
  Sender: MERCK SHARP & DOHME LLC
  Company Number: US-009507513-2259922

PATIENT
  Sex: Male

DRUGS (3)
  1. PEMBROLIZUMAB [Suspect]
     Active Substance: PEMBROLIZUMAB
     Dates: start: 20250210, end: 20250210
  2. LENVATINIB [Suspect]
     Active Substance: LENVATINIB
     Route: 048
     Dates: start: 20250117, end: 20250217
  3. LENVATINIB [Suspect]
     Active Substance: LENVATINIB
     Route: 048
     Dates: start: 20250224

REACTIONS (7)
  - Dysphonia [Recovering/Resolving]
  - Fatigue [Recovering/Resolving]
  - Ill-defined disorder [Recovering/Resolving]
  - Abdominal pain upper [Recovering/Resolving]
  - Tongue discomfort [Recovering/Resolving]
  - Skin lesion [Recovering/Resolving]
  - Dry skin [Recovering/Resolving]

NARRATIVE: CASE EVENT DATE: 20250201
